FAERS Safety Report 19422984 (Version 3)
Quarter: 2021Q3

REPORT INFORMATION
  Report Type: Spontaneous
  Country: US (occurrence: US)
  Receive Date: 20210616
  Receipt Date: 20210929
  Transmission Date: 20211014
  Serious: No
  Sender: FDA-Public Use
  Company Number: US-ASTRAZENECA-2021A466766

PATIENT
  Age: 928 Month
  Sex: Female
  Weight: 80.3 kg

DRUGS (1)
  1. BREZTRI AEROSPHERE [Suspect]
     Active Substance: BUDESONIDE\FORMOTEROL\GLYCOPYRRONIUM
     Indication: CHRONIC OBSTRUCTIVE PULMONARY DISEASE
     Dosage: 160/7.2/5.0 MCG,TWO TIMES A DAY
     Route: 055
     Dates: start: 202101

REACTIONS (5)
  - Drug dose omission by device [Recovered/Resolved]
  - Dyspnoea [Recovered/Resolved]
  - Intentional device misuse [Recovered/Resolved]
  - Device delivery system issue [Unknown]
  - Wrong technique in device usage process [Unknown]

NARRATIVE: CASE EVENT DATE: 202105
